FAERS Safety Report 15475188 (Version 2)
Quarter: 2018Q4

REPORT INFORMATION
  Report Type: Spontaneous
  Country: US (occurrence: US)
  Receive Date: 20181008
  Receipt Date: 20181012
  Transmission Date: 20190205
  Serious: Yes (Other)
  Sender: FDA-Public Use
  Company Number: US-BAUSCH-BL-2018-026839

PATIENT
  Age: 39 Year
  Sex: Male
  Weight: 118.04 kg

DRUGS (2)
  1. OCEAN SALINE NASAL SPRAY [Suspect]
     Active Substance: SODIUM CHLORIDE
     Dosage: ONE SPRAY IN EACH NOSTRIL AT BEDTIME
     Route: 045
     Dates: end: 20180924
  2. OCEAN SALINE NASAL SPRAY [Suspect]
     Active Substance: SODIUM CHLORIDE
     Indication: NASAL DRYNESS
     Dosage: ONE SPRAY IN EACH NOSTRIL AT BEDTIME
     Route: 045
     Dates: start: 201808

REACTIONS (2)
  - Respiratory tract infection [Recovering/Resolving]
  - Sinusitis [Recovering/Resolving]

NARRATIVE: CASE EVENT DATE: 20180914
